FAERS Safety Report 8869931 (Version 1)
Quarter: 2012Q4

REPORT INFORMATION
  Report Type: 
  Country: US (occurrence: US)
  Receive Date: 20121028
  Receipt Date: 20121028
  Transmission Date: 20130627
  Serious: No
  Sender: FDA-Public Use
  Company Number: US-009507513-1210USA012031

PATIENT
  Age: 10 None
  Sex: Male

DRUGS (1)
  1. NASONEX [Suspect]
     Indication: SINUS DISORDER
     Dosage: 50 Microgram, one spray in each nostril
     Route: 045
     Dates: start: 20120921

REACTIONS (3)
  - Rhinorrhoea [Recovering/Resolving]
  - Nasal congestion [Recovering/Resolving]
  - Drug dose omission [Unknown]
